FAERS Safety Report 4939033-5 (Version None)
Quarter: 2006Q1

REPORT INFORMATION
  Report Type: 
  Country: None (occurrence: None)
  Receive Date: 20060309
  Receipt Date: 20060217
  Transmission Date: 20060701
  Serious: Yes (Hospitalization)
  Sender: FDA-Public Use
  Company Number: US-MERCK-0602USA04899

PATIENT
  Age: 53 Year
  Sex: Male
  Weight: 64 kg

DRUGS (3)
  1. VIOXX [Suspect]
     Indication: RHEUMATOID ARTHRITIS
     Route: 048
     Dates: start: 19960101, end: 20011224
  2. TYLENOL (CAPLET) [Concomitant]
     Route: 065
  3. IBUPROFEN [Concomitant]
     Route: 065

REACTIONS (5)
  - ADVERSE EVENT [None]
  - CHEST PAIN [None]
  - JOINT INJURY [None]
  - MITRAL VALVE PROLAPSE [None]
  - SUBARACHNOID HAEMORRHAGE [None]
